FAERS Safety Report 16505665 (Version 3)
Quarter: 2019Q4

REPORT INFORMATION
  Report Type: Spontaneous
  Country: US (occurrence: US)
  Receive Date: 20190701
  Receipt Date: 20191104
  Transmission Date: 20200122
  Serious: No
  Sender: FDA-Public Use
  Company Number: US-SA-2019SA176628

PATIENT
  Age: 56 Year
  Sex: Female
  Weight: 47.62 kg

DRUGS (24)
  1. GAMUNEX [Concomitant]
     Active Substance: HUMAN IMMUNOGLOBULIN G
  2. NEXIUM I.V. [Concomitant]
     Active Substance: ESOMEPRAZOLE SODIUM
  3. LYRICA [Concomitant]
     Active Substance: PREGABALIN
  4. SYNTHROID [Concomitant]
     Active Substance: LEVOTHYROXINE SODIUM
  5. EPINEPHRINE. [Concomitant]
     Active Substance: EPINEPHRINE
  6. DUPIXENT [Suspect]
     Active Substance: DUPILUMAB
     Indication: ASTHMA
     Dosage: 300 MG, QOW
     Route: 058
     Dates: start: 2019
  7. ZOFRAN [Concomitant]
     Active Substance: ONDANSETRON HYDROCHLORIDE
  8. NUCALA [Concomitant]
     Active Substance: MEPOLIZUMAB
  9. ACCOLATE [Concomitant]
     Active Substance: ZAFIRLUKAST
  10. DILAUDID [Concomitant]
     Active Substance: HYDROMORPHONE HYDROCHLORIDE
  11. CLONAZEPAM. [Concomitant]
     Active Substance: CLONAZEPAM
  12. CYMBALTA [Concomitant]
     Active Substance: DULOXETINE HYDROCHLORIDE
  13. LIDOCAINE. [Concomitant]
     Active Substance: LIDOCAINE
  14. ACETAMINOPHEN. [Concomitant]
     Active Substance: ACETAMINOPHEN
  15. ZYRTEC [Concomitant]
     Active Substance: CETIRIZINE HYDROCHLORIDE
  16. XARELTO [Concomitant]
     Active Substance: RIVAROXABAN
  17. SPIRIVA RESPIMAT [Concomitant]
     Active Substance: TIOTROPIUM BROMIDE
     Route: 055
  18. MULTIPLE VITAMINS [Concomitant]
     Active Substance: VITAMINS
  19. METHOTREXATE. [Concomitant]
     Active Substance: METHOTREXATE
  20. DIPHENHYDRAMINE. [Concomitant]
     Active Substance: DIPHENHYDRAMINE
  21. VITAMIN D3 [Concomitant]
     Active Substance: CHOLECALCIFEROL
  22. CALCIUM + D3 [CALCIUM;COLECALCIFEROL] [Concomitant]
  23. PEPCID [Concomitant]
     Active Substance: FAMOTIDINE
  24. ZOLOFT [Concomitant]
     Active Substance: SERTRALINE HYDROCHLORIDE

REACTIONS (2)
  - Headache [Unknown]
  - Asthma [Recovered/Resolved]

NARRATIVE: CASE EVENT DATE: 2019
